FAERS Safety Report 23435703 (Version 1)
Quarter: 2024Q1

REPORT INFORMATION
  Report Type: Spontaneous
  Country: US (occurrence: US)
  Receive Date: 20240124
  Receipt Date: 20240124
  Transmission Date: 20240410
  Serious: No
  Sender: FDA-Public Use
  Company Number: US-009507513-2401USA004343

PATIENT
  Age: 63 Year
  Sex: Female

DRUGS (2)
  1. KEYTRUDA [Suspect]
     Active Substance: PEMBROLIZUMAB
     Indication: Endometrial cancer
     Dosage: UNK
  2. LENVATINIB MESYLATE [Suspect]
     Active Substance: LENVATINIB MESYLATE
     Indication: Endometrial cancer
     Dosage: 14 MILLIGRAM, QD
     Route: 048
     Dates: start: 20231004, end: 20240102

REACTIONS (9)
  - Pruritus [Unknown]
  - Pain in extremity [Unknown]
  - Back pain [Unknown]
  - Tongue disorder [Unknown]
  - Feeding disorder [Unknown]
  - Oral hyperaesthesia [Unknown]
  - Oral pain [Unknown]
  - Weight decreased [Unknown]
  - Product use issue [Unknown]

NARRATIVE: CASE EVENT DATE: 20231201
